FAERS Safety Report 21168144 (Version 1)
Quarter: 2022Q3

REPORT INFORMATION
  Report Type: Spontaneous
  Country: US (occurrence: None)
  Receive Date: 20220803
  Receipt Date: 20220803
  Transmission Date: 20221027
  Serious: No
  Sender: FDA-Public Use
  Company Number: None

PATIENT
  Age: 79 Year
  Sex: Female

DRUGS (1)
  1. RINVOQ [Suspect]
     Active Substance: UPADACITINIB
     Indication: Rheumatoid arthritis
     Dosage: FREQUENCY : DAILY;?
     Route: 048
     Dates: start: 202012

REACTIONS (8)
  - Abdominal pain upper [None]
  - Vomiting [None]
  - Diarrhoea [None]
  - Urinary tract infection [None]
  - Therapy interrupted [None]
  - Cholelithiasis [None]
  - Oxygen saturation decreased [None]
  - Pulmonary oedema [None]
